FAERS Safety Report 5489007-3 (Version None)
Quarter: 2007Q4

REPORT INFORMATION
  Report Type: 
  Country: None (occurrence: None)
  Receive Date: 20071005
  Receipt Date: 20070925
  Transmission Date: 20080405
  Serious: Yes (Life-Threatening)
  Sender: FDA-Public Use
  Company Number: THYM-11554

PATIENT
  Age: 10 Year
  Sex: Female
  Weight: 19 kg

DRUGS (2)
  1. THYMOGLOBULIN [Suspect]
     Indication: BONE MARROW TRANSPLANT
     Dosage: 2.5 MG ONCE IV
     Route: 042
     Dates: start: 20070818, end: 20070818
  2. THYMOGLOBULIN [Suspect]
     Indication: BONE MARROW TRANSPLANT
     Dosage: 50 MG ONCE IV
     Route: 042
     Dates: start: 20070818, end: 20070818

REACTIONS (6)
  - CHEST DISCOMFORT [None]
  - CYANOSIS [None]
  - DYSPNOEA [None]
  - OXYGEN SATURATION DECREASED [None]
  - PYREXIA [None]
  - TACHYCARDIA [None]
